FAERS Safety Report 7064881-8 (Version None)
Quarter: 2010Q4

REPORT INFORMATION
  Report Type: 
  Country: None (occurrence: None)
  Receive Date: 20101027
  Receipt Date: 19881130
  Transmission Date: 20110411
  Serious: Yes (Death, Hospitalization)
  Sender: FDA-Public Use
  Company Number: DE-ROCHE-880315136001

PATIENT
  Sex: Male
  Weight: 74 kg

DRUGS (4)
  1. ROFERON-A [Suspect]
     Indication: HAIRY CELL LEUKAEMIA
     Route: 058
     Dates: start: 19880926, end: 19881121
  2. ROFERON-A [Suspect]
     Route: 058
     Dates: start: 19880502, end: 19880925
  3. ROFERON-A [Suspect]
     Route: 058
     Dates: start: 19881205, end: 19881205
  4. KATADOLON [Concomitant]
     Indication: HEADACHE
     Route: 048
     Dates: start: 19881118, end: 19881118

REACTIONS (4)
  - CARDIOPULMONARY FAILURE [None]
  - DERMATITIS BULLOUS [None]
  - INFLUENZA LIKE ILLNESS [None]
  - PYREXIA [None]
